FAERS Safety Report 7778239-7 (Version None)
Quarter: 2011Q3

REPORT INFORMATION
  Report Type: 
  Country: None (occurrence: None)
  Receive Date: 20110926
  Receipt Date: 20110921
  Transmission Date: 20111222
  Serious: Yes (Other)
  Sender: FDA-Public Use
  Company Number: US-CEPHALON-2011005029

PATIENT
  Sex: Male
  Weight: 72 kg

DRUGS (7)
  1. FLOMAX [Concomitant]
  2. TREANDA [Suspect]
     Indication: CHRONIC LYMPHOCYTIC LEUKAEMIA
     Route: 042
     Dates: start: 20110509
  3. TRIAMTERENE AND HYDROCHLOROTHIAZIDE [Concomitant]
  4. METOPROLOL TARTRATE [Concomitant]
  5. RITUXAN [Concomitant]
     Indication: CHRONIC LYMPHOCYTIC LEUKAEMIA
     Route: 042
     Dates: start: 20110509
  6. ASPIRIN [Concomitant]
  7. TYLENOL-500 [Concomitant]

REACTIONS (3)
  - BLISTER [None]
  - PLATELET COUNT DECREASED [None]
  - RASH [None]
